FAERS Safety Report 24579120 (Version 1)
Quarter: 2024Q4

REPORT INFORMATION
  Report Type: Spontaneous
  Country: KR (occurrence: KR)
  Receive Date: 20241105
  Receipt Date: 20241105
  Transmission Date: 20250115
  Serious: Yes (Other)
  Sender: MERCK
  Company Number: KR-009507513-2411KOR000513

PATIENT
  Age: 50 Year
  Sex: Female

DRUGS (3)
  1. PEMBROLIZUMAB [Suspect]
     Active Substance: PEMBROLIZUMAB
     Indication: Breast cancer
     Dosage: UNK
  2. PACLITAXEL [Suspect]
     Active Substance: PACLITAXEL
     Indication: Breast cancer
     Dosage: UNK
  3. CARBOPLATIN [Suspect]
     Active Substance: CARBOPLATIN
     Indication: Breast cancer
     Dosage: UNK

REACTIONS (8)
  - Type 1 diabetes mellitus [Unknown]
  - Immunoglobulin G4 related disease [Unknown]
  - Sjogren^s syndrome [Unknown]
  - Blood thyroid stimulating hormone decreased [Unknown]
  - Blood thyroid stimulating hormone decreased [Unknown]
  - Vasculitis [Unknown]
  - Antinuclear antibody positive [Unknown]
  - Antineutrophil cytoplasmic antibody positive [Unknown]
